FAERS Safety Report 9307098 (Version 1)
Quarter: 2013Q2

REPORT INFORMATION
  Report Type: Spontaneous
  Country: US (occurrence: US)
  Receive Date: 20130524
  Receipt Date: 20130524
  Transmission Date: 20140414
  Serious: No
  Sender: FDA-Public Use
  Company Number: US-009507513-1305USA013872

PATIENT
  Sex: 0

DRUGS (2)
  1. COPPERTONE SPORT CONTINUOUS SPRAY SPF-30 [Suspect]
     Indication: PRODUCT USED FOR UNKNOWN INDICATION
     Dosage: UNK, UNKNOWN
     Route: 061
     Dates: start: 20130505
  2. COPPERTONE SPORT CONTINUOUS SPRAY SPF-30 [Suspect]
     Indication: PRODUCT USED FOR UNKNOWN INDICATION

REACTIONS (1)
  - Application site rash [Unknown]
